FAERS Safety Report 24807760 (Version 4)
Quarter: 2025Q4

REPORT INFORMATION
  Report Type: Report from Study
  Country: US (occurrence: None)
  Receive Date: 20250105
  Receipt Date: 20251229
  Transmission Date: 20260117
  Serious: Yes (Other)
  Sender: UCB
  Company Number: US-UCBSA-2023002013

PATIENT
  Age: 14 Year
  Weight: 45 kg

DRUGS (10)
  1. FENFLURAMINE [Suspect]
     Active Substance: FENFLURAMINE
     Indication: Lennox-Gastaut syndrome
     Dosage: 6 MILLILITER, 2X/DAY (BID)
  2. FENFLURAMINE [Suspect]
     Active Substance: FENFLURAMINE
     Indication: Epilepsy
     Dosage: 2 MILLIGRAM, 2X/DAY (BID) FOR 2 WEEKS
  3. FENFLURAMINE [Suspect]
     Active Substance: FENFLURAMINE
     Dosage: 4 MILLIGRAM, 2X/DAY (BID)  FOR 2 WEEKS
  4. FENFLURAMINE [Suspect]
     Active Substance: FENFLURAMINE
     Dosage: 6 MILLILITER, 2X/DAY (BID)
  5. FENFLURAMINE [Suspect]
     Active Substance: FENFLURAMINE
     Dosage: 4 MILLIGRAM, 2X/DAY (BID)
  6. FENFLURAMINE [Suspect]
     Active Substance: FENFLURAMINE
     Dosage: 4 MILLILITER, 2X/DAY (BID)
  7. FENFLURAMINE [Suspect]
     Active Substance: FENFLURAMINE
     Dosage: 6 MILLILITER, 2X/DAY (BID)
  8. FENFLURAMINE [Suspect]
     Active Substance: FENFLURAMINE
     Dosage: DAILY DOSE: 26.4 MG/DAY/ 6ML BID
  9. dep [Concomitant]
     Indication: Epilepsy
     Dosage: 750 MILLIGRAM, 2X/DAY (BID)
  10. epidio [Concomitant]
     Indication: Epilepsy
     Dosage: UNK

REACTIONS (8)
  - Seizure [Unknown]
  - Tricuspid valve incompetence [Unknown]
  - Hypersomnia [Recovering/Resolving]
  - Logorrhoea [Unknown]
  - Decreased appetite [Recovered/Resolved]
  - Feeling abnormal [Recovered/Resolved]
  - Food refusal [Recovering/Resolving]
  - Liquid product physical issue [Unknown]
